FAERS Safety Report 5383446-7 (Version None)
Quarter: 2007Q3

REPORT INFORMATION
  Report Type: 
  Country: None (occurrence: None)
  Receive Date: 20070710
  Receipt Date: 20070706
  Transmission Date: 20080115
  Serious: Yes (Disabling)
  Sender: FDA-Public Use
  Company Number: US-BOEHRINGER INGELHEIM PHARMACEUTICALS, INC.-2007-BP-09642BP

PATIENT
  Age: 82 Year
  Sex: Male
  Weight: 79 kg

DRUGS (5)
  1. FLOMAX [Suspect]
     Indication: BENIGN PROSTATIC HYPERPLASIA
     Route: 048
     Dates: start: 20040101
  2. FLOMAX [Suspect]
     Indication: URINARY TRACT DISORDER
  3. DIOVAN [Concomitant]
  4. NAPROSYN [Concomitant]
  5. ACIPHEX [Concomitant]

REACTIONS (7)
  - BLINDNESS UNILATERAL [None]
  - CATARACT OPERATION [None]
  - CATARACT OPERATION COMPLICATION [None]
  - CORNEAL OEDEMA [None]
  - CORNEAL OPERATION [None]
  - INFLAMMATION [None]
  - INTRAOCULAR PRESSURE INCREASED [None]
